FAERS Safety Report 8010732-4 (Version None)
Quarter: 2011Q4

REPORT INFORMATION
  Report Type: 
  Country: None (occurrence: None)
  Receive Date: 20111228
  Receipt Date: 20111215
  Transmission Date: 20120403
  Serious: Yes (Other)
  Sender: FDA-Public Use
  Company Number: FR-SANOFI-AVENTIS-2011SA082118

PATIENT
  Age: 57 Year
  Sex: Female

DRUGS (7)
  1. ARAVA [Suspect]
     Indication: RHEUMATOID ARTHRITIS
     Route: 048
     Dates: start: 20111108, end: 20111129
  2. IRBESARTAN AND HYDROCHLOROTHIAZIDE [Concomitant]
     Route: 048
  3. ACETAMINOPHEN [Concomitant]
     Route: 048
  4. MEDIATENSYL [Concomitant]
     Route: 048
  5. ESCITALOPRAM OXALATE [Concomitant]
     Route: 048
  6. LYRICA [Concomitant]
     Route: 048
  7. TRAMADOL HCL [Concomitant]
     Route: 048

REACTIONS (3)
  - RASH [None]
  - PETECHIAE [None]
  - MOUTH ULCERATION [None]
